FAERS Safety Report 5597187-4 (Version None)
Quarter: 2008Q1

REPORT INFORMATION
  Report Type: 
  Country: None (occurrence: None)
  Receive Date: 20080121
  Receipt Date: 20080110
  Transmission Date: 20080703
  Serious: Yes (Hospitalization, Other)
  Sender: FDA-Public Use
  Company Number: US-JNJFOC-20080102940

PATIENT
  Sex: Female
  Weight: 99.79 kg

DRUGS (1)
  1. DURAGESIC-100 [Suspect]
     Indication: PAIN
     Route: 062

REACTIONS (7)
  - BREAST CANCER [None]
  - COUGH [None]
  - DYSPNOEA [None]
  - INAPPROPRIATE SCHEDULE OF DRUG ADMINISTRATION [None]
  - PHARYNGITIS STREPTOCOCCAL [None]
  - PNEUMONIA [None]
  - UNEVALUABLE EVENT [None]
